FAERS Safety Report 9870477 (Version 2)
Quarter: 2014Q1

REPORT INFORMATION
  Report Type: Spontaneous
  Country: US (occurrence: US)
  Receive Date: 20140205
  Receipt Date: 20140327
  Transmission Date: 20141002
  Serious: Yes (Hospitalization, Other)
  Sender: FDA-Public Use
  Company Number: US-FRI-1000053282

PATIENT
  Age: 53 Year
  Sex: Female

DRUGS (18)
  1. VIIBRYD [Suspect]
     Indication: DEPRESSION
     Dosage: 10 MG
     Route: 048
     Dates: start: 201210, end: 2012
  2. VIIBRYD [Suspect]
     Dosage: 20 MG
     Route: 048
     Dates: start: 2012, end: 2012
  3. VIIBRYD [Suspect]
     Dosage: 40 MG
     Route: 048
     Dates: start: 2012, end: 2013
  4. ZANTAC [Concomitant]
     Indication: GASTROOESOPHAGEAL REFLUX DISEASE
     Dosage: 600 MG
  5. ZANTAC [Concomitant]
     Indication: IMPAIRED GASTRIC EMPTYING
  6. DEXILANT [Concomitant]
     Indication: GASTROOESOPHAGEAL REFLUX DISEASE
     Dosage: 60 MG
  7. DEXILANT [Concomitant]
     Indication: IMPAIRED GASTRIC EMPTYING
  8. LEVOTHYROXINE [Concomitant]
     Indication: HYPOTHYROIDISM
  9. GABAPENTIN [Concomitant]
     Indication: NEUROPATHY PERIPHERAL
     Dosage: 900 MG
  10. NOVOLOG [Concomitant]
     Indication: DIABETES MELLITUS
  11. LISINOPRIL [Concomitant]
     Indication: HYPERTENSION
     Dosage: 5 MG
  12. MUCINEX [Concomitant]
     Indication: CHRONIC OBSTRUCTIVE PULMONARY DISEASE
     Dosage: DAILY
  13. VALTREX [Concomitant]
     Indication: HERPES VIRUS INFECTION
     Dosage: 0.5 GM
  14. MVI [Concomitant]
     Dosage: DAILY
  15. VITAMIN D3 [Concomitant]
     Indication: RENAL FAILURE CHRONIC
     Dosage: 2000 MG
  16. PROCRIT [Concomitant]
     Indication: ANAEMIA
     Dosage: AS NEEDED
  17. FUROSEMIDE [Concomitant]
     Indication: SWELLING
     Dosage: 20 MG AS NEEDED
  18. PROAIR [Concomitant]
     Indication: CHRONIC OBSTRUCTIVE PULMONARY DISEASE
     Dosage: AS NEEDED

REACTIONS (4)
  - Pancreatitis [Recovered/Resolved]
  - Hyperglycaemia [Recovered/Resolved]
  - Feeling drunk [Recovered/Resolved]
  - Chest pain [Unknown]
